FAERS Safety Report 16991264 (Version 1)
Quarter: 2019Q4

REPORT INFORMATION
  Report Type: Spontaneous
  Country: US (occurrence: US)
  Receive Date: 20190920
  Receipt Date: 20190920
  Transmission Date: 20200122
  Serious: Yes (Other)
  Sender: FDA-Public Use
  Company Number: None

PATIENT
  Age: 67 Year
  Sex: Female
  Weight: 85.73 kg

DRUGS (4)
  1. DICLOFENAC [Concomitant]
     Active Substance: DICLOFENAC
  2. IRBESARTAN 300MG TABLET [Suspect]
     Active Substance: IRBESARTAN
     Indication: HYPERTENSION
     Dosage: ?          QUANTITY:30 PILLS;?
     Route: 048
     Dates: start: 20190628, end: 20190723
  3. DIPHENHYDRAMINE. [Concomitant]
     Active Substance: DIPHENHYDRAMINE
  4. AMLODIPINE BESYLATE. [Concomitant]
     Active Substance: AMLODIPINE BESYLATE

REACTIONS (4)
  - Rash [None]
  - Hypersensitivity [None]
  - Blister [None]
  - Urticaria [None]

NARRATIVE: CASE EVENT DATE: 20190712
